FAERS Safety Report 9115202 (Version 3)
Quarter: 2013Q1

REPORT INFORMATION
  Report Type: Report from Study
  Country: IT (occurrence: IT)
  Receive Date: 20130225
  Receipt Date: 20130315
  Transmission Date: 20140127
  Serious: Yes (Hospitalization)
  Sender: FDA-Public Use
  Company Number: IT-SANOFI-AVENTIS-2013SA017600

PATIENT
  Age: 74 Year
  Sex: Male
  Weight: 76 kg

DRUGS (12)
  1. CABAZITAXEL [Suspect]
     Indication: PROSTATE CANCER METASTATIC
     Route: 042
     Dates: start: 20130205, end: 20130205
  2. PREDNISONE [Suspect]
     Indication: PROSTATE CANCER METASTATIC
     Route: 048
     Dates: start: 20130205, end: 20130218
  3. LEUPRORELIN ACETATE [Concomitant]
     Route: 030
     Dates: start: 20110902
  4. PREDNISONE [Concomitant]
     Indication: PROPHYLAXIS
     Route: 048
     Dates: start: 20130201
  5. COUMADIN [Concomitant]
     Route: 048
     Dates: start: 20121023
  6. METFORMIN [Concomitant]
     Route: 048
  7. ATENOLOL [Concomitant]
     Route: 048
  8. VASCOMAN [Concomitant]
     Route: 048
  9. ENALAPRIL [Concomitant]
     Route: 048
  10. TAMSULOSIN [Concomitant]
     Route: 048
  11. CALCIUM-SANDOZ [Concomitant]
     Indication: PROPHYLAXIS
     Route: 048
     Dates: start: 20121205
  12. COLECALCIFEROL [Concomitant]
     Indication: PROPHYLAXIS
     Route: 048
     Dates: start: 20120731

REACTIONS (1)
  - International normalised ratio increased [Recovered/Resolved]
